FAERS Safety Report 10238731 (Version 1)
Quarter: 2014Q2

REPORT INFORMATION
  Report Type: Report from Study
  Country: CO (occurrence: CO)
  Receive Date: 20140616
  Receipt Date: 20140616
  Transmission Date: 20141212
  Serious: Yes (Hospitalization)
  Sender: FDA-Public Use
  Company Number: CO-SA-2014SA073689

PATIENT
  Age: 84 Year
  Sex: Female

DRUGS (1)
  1. LANTUS [Suspect]
     Indication: DIABETES MELLITUS
     Dosage: DOSE:21 UNIT(S)
     Route: 058
     Dates: start: 2012, end: 201404

REACTIONS (6)
  - Hip fracture [Recovered/Resolved]
  - Fall [Unknown]
  - Eschar [Recovered/Resolved]
  - Pneumonia [Unknown]
  - Hyperglycaemia [Recovered/Resolved]
  - Hyperglycaemia [Not Recovered/Not Resolved]
